FAERS Safety Report 23548337 (Version 2)
Quarter: 2024Q2

REPORT INFORMATION
  Report Type: Spontaneous
  Country: US (occurrence: US)
  Receive Date: 20240221
  Receipt Date: 20240624
  Transmission Date: 20240715
  Serious: Yes (Other)
  Sender: FDA-Public Use
  Company Number: US-TEVA-VS-3158445

PATIENT
  Age: 6 Year
  Sex: Female

DRUGS (5)
  1. DEXAMETHASONE [Suspect]
     Active Substance: DEXAMETHASONE
     Indication: Adrenal gland cancer
     Dosage: 5MG/M2/DAY (245MG/M2/DAY DOSE EQUIVALENT TO HYDROCORTISONE)
     Route: 065
  2. ETOPOSIDE [Concomitant]
     Active Substance: ETOPOSIDE
     Indication: Adrenal gland cancer
     Route: 065
  3. MITOTANE [Suspect]
     Active Substance: MITOTANE
     Indication: Adrenal gland cancer
     Route: 065
  4. CISPLATIN [Concomitant]
     Active Substance: CISPLATIN
     Indication: Adrenal gland cancer
     Route: 065
  5. DOXORUBICIN [Concomitant]
     Active Substance: DOXORUBICIN
     Indication: Adrenal gland cancer
     Route: 065

REACTIONS (3)
  - Drug interaction [Recovering/Resolving]
  - Adrenocortical insufficiency acute [Recovering/Resolving]
  - Hyperlipidaemia [Unknown]
